FAERS Safety Report 17049331 (Version 3)
Quarter: 2019Q4

REPORT INFORMATION
  Report Type: Report from Study
  Country: US (occurrence: US)
  Receive Date: 20191119
  Receipt Date: 20191227
  Transmission Date: 20200122
  Serious: No
  Sender: FDA-Public Use
  Company Number: US-IPSEN BIOPHARMACEUTICALS, INC.-2019-21430

PATIENT
  Age: 28 Year

DRUGS (1)
  1. DYSPORT [Suspect]
     Active Substance: ABOBOTULINUMTOXINA
     Indication: TORTICOLLIS
     Dosage: 400 (UNITS NOT SPECIFIED) TORTICOLLIS (200) AND LATEROCOLLIS (200)
     Route: 065

REACTIONS (1)
  - Therapeutic response shortened [Unknown]
